FAERS Safety Report 25471051 (Version 2)
Quarter: 2025Q3

REPORT INFORMATION
  Report Type: Report from Study
  Country: CA (occurrence: CA)
  Receive Date: 20250624
  Receipt Date: 20250720
  Transmission Date: 20251021
  Serious: Yes (Hospitalization)
  Sender: ABBVIE
  Company Number: CA-ABBVIE-6333994

PATIENT
  Age: 59 Year
  Sex: Female

DRUGS (1)
  1. HUMIRA [Suspect]
     Active Substance: ADALIMUMAB
     Indication: Product used for unknown indication
     Dosage: LAST DOSE: 05 JUN 2025
     Route: 058
     Dates: end: 202506

REACTIONS (12)
  - Stomatitis [Recovered/Resolved]
  - Vomiting [Recovered/Resolved]
  - Blood iron decreased [Recovered/Resolved]
  - Rheumatoid arthritis [Unknown]
  - Spinal stenosis [Unknown]
  - Cognitive disorder [Not Recovered/Not Resolved]
  - Confusional state [Unknown]
  - Pulmonary mass [Unknown]
  - Urinary tract infection [Unknown]
  - Fatigue [Unknown]
  - Sarcoidosis [Unknown]
  - Arthritis [Unknown]

NARRATIVE: CASE EVENT DATE: 20250601
